FAERS Safety Report 10694650 (Version 2)
Quarter: 2015Q1

REPORT INFORMATION
  Report Type: Spontaneous
  Country: US (occurrence: US)
  Receive Date: 20150107
  Receipt Date: 20150128
  Transmission Date: 20150721
  Serious: Yes (Hospitalization)
  Sender: FDA-Public Use
  Company Number: US-SA-2015SA000888

PATIENT
  Age: 54 Year
  Sex: Male

DRUGS (6)
  1. FABRAZYME [Suspect]
     Active Substance: AGALSIDASE BETA
     Indication: FABRY^S DISEASE
     Route: 041
  2. AMIODARONE [Concomitant]
     Active Substance: AMIODARONE
     Indication: VENTRICULAR TACHYCARDIA
     Dates: start: 200909
  3. MAGNESIUM [Concomitant]
     Active Substance: MAGNESIUM
     Indication: VENTRICULAR TACHYCARDIA
     Dates: start: 2010
  4. MEXILETINE [Concomitant]
     Active Substance: MEXILETINE
     Indication: VENTRICULAR TACHYCARDIA
     Dates: start: 2008
  5. RANEXA [Concomitant]
     Active Substance: RANOLAZINE
     Indication: VENTRICULAR TACHYCARDIA
     Dates: start: 201410
  6. METOPROLOL [Concomitant]
     Active Substance: METOPROLOL
     Indication: CARDIAC FAILURE CONGESTIVE
     Dates: start: 2009

REACTIONS (1)
  - Ventricular tachycardia [Not Recovered/Not Resolved]
